FAERS Safety Report 5217025-9 (Version None)
Quarter: 2007Q1

REPORT INFORMATION
  Report Type: 
  Country: None (occurrence: None)
  Receive Date: 20070119
  Receipt Date: 20070112
  Transmission Date: 20070707
  Serious: Yes (Hospitalization)
  Sender: FDA-Public Use
  Company Number: URSO-2007-003

PATIENT
  Age: 75 Year
  Sex: Male

DRUGS (1)
  1. URSO 250 [Suspect]
     Indication: LIVER DISORDER
     Dosage: 300MG PO
     Route: 048
     Dates: start: 20060127, end: 20061226

REACTIONS (1)
  - ERYTHEMA MULTIFORME [None]
